FAERS Safety Report 6843417-8 (Version None)
Quarter: 2010Q3

REPORT INFORMATION
  Report Type: 
  Country: None (occurrence: None)
  Receive Date: 20100715
  Receipt Date: 20100715
  Transmission Date: 20110219
  Serious: Yes (Death)
  Sender: FDA-Public Use
  Company Number: None

PATIENT
  Age: 1 Year
  Sex: Male
  Weight: 9.0719 kg

DRUGS (3)
  1. CONCENTRATED TYLENOL INFANT DROPS [Suspect]
     Indication: EAR INFECTION
     Dosage: AS DIRECTED BY DOCTOR AS NEEDED PO
     Route: 048
     Dates: start: 20100329, end: 20100409
  2. CONCENTRATED TYLENOL INFANT DROPS [Suspect]
     Indication: PYREXIA
     Dosage: AS DIRECTED BY DOCTOR AS NEEDED PO
     Route: 048
     Dates: start: 20100329, end: 20100409
  3. CONCENTRATED TYLENOL INFANT DROPS [Suspect]

REACTIONS (3)
  - MENINGITIS VIRAL [None]
  - PRODUCT CONTAMINATION [None]
  - PRODUCT QUALITY ISSUE [None]
